FAERS Safety Report 8951384 (Version 1)
Quarter: 2012Q4

REPORT INFORMATION
  Report Type: Report from Study
  Country: JP (occurrence: JP)
  Receive Date: 20121207
  Receipt Date: 20121207
  Transmission Date: 20130627
  Serious: Yes (Hospitalization)
  Sender: FDA-Public Use
  Company Number: JP-009507513-2012SP018305

PATIENT
  Age: 55 Year
  Sex: Female
  Weight: 97 kg

DRUGS (7)
  1. PEGINTRON [Suspect]
     Indication: CHRONIC HEPATITIS C
     Dosage: 1.5 Microgram per kilogram, every week
     Route: 058
     Dates: start: 20120131, end: 20120402
  2. PEGINTRON [Suspect]
     Dosage: 1.2 Microgram per kilogram, every week
     Route: 058
     Dates: start: 20120409
  3. PEGINTRON [Suspect]
     Dosage: 1.5 Microgram per kilogram, every week
     Route: 058
     Dates: end: 20120709
  4. REBETOL [Suspect]
     Indication: CHRONIC HEPATITIS C
     Dosage: 1000 mg, QD
     Route: 048
     Dates: start: 20120131, end: 20120408
  5. REBETOL [Suspect]
     Dosage: 800 mg, QD
     Route: 048
     Dates: start: 20120409, end: 20120717
  6. TELAVIC [Suspect]
     Indication: CHRONIC HEPATITIS C
     Dosage: 2250 mg, QD
     Route: 048
     Dates: start: 20120131, end: 20120327
  7. LUPRAC [Suspect]
     Indication: FACE OEDEMA
     Dosage: 4 mg, QD
     Route: 048
     Dates: start: 20120326, end: 20120405

REACTIONS (4)
  - Face oedema [Recovered/Resolved]
  - Hypokalaemia [Recovered/Resolved]
  - Nausea [Recovered/Resolved]
  - Vomiting [Recovered/Resolved]
